FAERS Safety Report 21735963 (Version 2)
Quarter: 2022Q4

REPORT INFORMATION
  Report Type: Spontaneous
  Country: US (occurrence: US)
  Receive Date: 20221215
  Receipt Date: 20221221
  Transmission Date: 20230113
  Serious: Yes (Other)
  Sender: FDA-Public Use
  Company Number: US-PFIZER INC-PV202200120954

PATIENT
  Age: 2 Year
  Sex: Male

DRUGS (1)
  1. SOMATROPIN [Suspect]
     Active Substance: SOMATROPIN
     Dosage: 0.4 MG  [6 DAYS A WEEK]
     Dates: start: 20221207

REACTIONS (7)
  - Streptococcal infection [Unknown]
  - Hypersensitivity [Unknown]
  - Rash [Unknown]
  - Pyrexia [Unknown]
  - Rhinorrhoea [Unknown]
  - Vomiting [Unknown]
  - Erythema [Unknown]

NARRATIVE: CASE EVENT DATE: 20221207
